FAERS Safety Report 14183591 (Version 1)
Quarter: 2017Q4

REPORT INFORMATION
  Report Type: Spontaneous
  Country: KZ (occurrence: KZ)
  Receive Date: 20171113
  Receipt Date: 20171113
  Transmission Date: 20180321
  Serious: Yes (Hospitalization, Other)
  Sender: FDA-Public Use
  Company Number: KZ-TEVA-824797ISR

PATIENT
  Age: 4 Year

DRUGS (1)
  1. SUMAMED [Suspect]
     Active Substance: AZITHROMYCIN ANHYDROUS
     Indication: TONSILLITIS
     Dosage: 250 MILLIGRAM DAILY; 2 TABLETS (PER 125 MG) ONCE A DAY
     Route: 048
     Dates: start: 201709

REACTIONS (2)
  - Drug administered to patient of inappropriate age [Unknown]
  - Haemorrhagic vasculitis [Recovered/Resolved with Sequelae]
